FAERS Safety Report 9097967 (Version 1)
Quarter: 2013Q1

REPORT INFORMATION
  Report Type: Spontaneous
  Country: US (occurrence: US)
  Receive Date: 20130212
  Receipt Date: 20130212
  Transmission Date: 20140127
  Serious: No
  Sender: FDA-Public Use
  Company Number: US-PFIZER INC-2013055484

PATIENT
  Sex: Male

DRUGS (1)
  1. CHANTIX [Suspect]
     Dosage: UNK
     Dates: start: 201301

REACTIONS (7)
  - Hiccups [Unknown]
  - Vomiting [Unknown]
  - Wheezing [Unknown]
  - Retching [Unknown]
  - Suffocation feeling [Unknown]
  - Hyperhidrosis [Unknown]
  - Nightmare [Unknown]
